FAERS Safety Report 9202395 (Version 1)
Quarter: 2013Q2

REPORT INFORMATION
  Report Type: Report from Study
  Country: US (occurrence: US)
  Receive Date: 20130401
  Receipt Date: 20130401
  Transmission Date: 20140414
  Serious: Yes (Hospitalization, Other)
  Sender: FDA-Public Use
  Company Number: US-ASTRAZENECA-2010SE17715

PATIENT
  Age: 63 Year
  Sex: Female

DRUGS (14)
  1. TOPROL XL [Suspect]
     Indication: BLOOD PRESSURE INCREASED
     Route: 048
  2. TOPROL XL [Suspect]
     Indication: BLOOD PRESSURE INCREASED
     Route: 048
  3. VIT B [Concomitant]
  4. METFORMIN [Concomitant]
  5. JANUVA [Concomitant]
  6. CELEBREX [Concomitant]
  7. PROTONIX [Concomitant]
  8. LASIX [Concomitant]
  9. IMDUR [Concomitant]
  10. PROVACHOL [Concomitant]
  11. ATIVAN [Concomitant]
  12. WARFARIN [Concomitant]
  13. ZETIA [Concomitant]
  14. ESTRACE [Concomitant]

REACTIONS (5)
  - Cardiac failure [Unknown]
  - Cardiac failure congestive [Unknown]
  - Palpitations [Unknown]
  - Conduction disorder [Unknown]
  - Therapeutic response unexpected [Unknown]
